FAERS Safety Report 21249336 (Version 9)
Quarter: 2025Q2

REPORT INFORMATION
  Report Type: Spontaneous
  Country: IN (occurrence: IN)
  Receive Date: 20220824
  Receipt Date: 20250521
  Transmission Date: 20250717
  Serious: Yes (Other)
  Sender: PFIZER
  Company Number: IN-PFIZER INC-PV202200048314

PATIENT
  Age: 71 Year
  Sex: Female
  Weight: 64 kg

DRUGS (14)
  1. PALBOCICLIB [Suspect]
     Active Substance: PALBOCICLIB
     Indication: Breast cancer metastatic
     Route: 048
     Dates: start: 20220515
  2. PALBOCICLIB [Suspect]
     Active Substance: PALBOCICLIB
     Route: 048
  3. PALBOCICLIB [Suspect]
     Active Substance: PALBOCICLIB
     Dosage: 125 MG, 1X/DAY, 21 DAYS, 7 DAYS OFF
     Route: 048
  4. ANASTROZOLE [Concomitant]
     Active Substance: ANASTROZOLE
     Dosage: 1 MG, 1X/DAY
  5. CALCIUM CARBONATE\CHOLECALCIFEROL [Concomitant]
     Active Substance: CALCIUM CARBONATE\CHOLECALCIFEROL
     Dosage: 1 TAB, 1X/DAY
  6. ZOLEDRONIC ACID [Concomitant]
     Active Substance: ZOLEDRONIC ACID
     Dosage: 4 MG, IN 100ML NS OVER 30MIN MONTHLY
  7. DOLO 650 [Concomitant]
     Indication: Pain
  8. LETROZOLE [Concomitant]
     Active Substance: LETROZOLE
  9. CALCIUM [Concomitant]
     Active Substance: CALCIUM
  10. DEXORANGE [Concomitant]
  11. VITAMIN B12 [Concomitant]
     Active Substance: CYANOCOBALAMIN
  12. FOLATE SODIUM [Concomitant]
     Active Substance: FOLATE SODIUM
  13. PROLOMET [Concomitant]
     Indication: Hypertension
     Dosage: 100 MG, 1X/DAY
  14. GLYCOMET [METFORMIN HYDROCHLORIDE] [Concomitant]
     Indication: Blood glucose abnormal
     Dosage: 500 MG, 2X/DAY

REACTIONS (6)
  - Hypertension [Recovering/Resolving]
  - Lymphocyte count abnormal [Unknown]
  - Vital functions abnormal [Unknown]
  - Haemoglobin decreased [Recovering/Resolving]
  - White blood cell count decreased [Recovering/Resolving]
  - Body temperature decreased [Unknown]

NARRATIVE: CASE EVENT DATE: 20230818
